FAERS Safety Report 5805852-6 (Version None)
Quarter: 2008Q3

REPORT INFORMATION
  Report Type: 
  Country: None (occurrence: None)
  Receive Date: 20080708
  Receipt Date: 20080623
  Transmission Date: 20090109
  Serious: Yes (Other)
  Sender: FDA-Public Use
  Company Number: 2008SP013014

PATIENT
  Age: 66 Year
  Sex: Female

DRUGS (5)
  1. CORRECTOL [Suspect]
     Indication: DRUG USE FOR UNKNOWN INDICATION
     Dosage: 15 MG;, 15 MG;
     Dates: start: 20070101
  2. CORRECTOL [Suspect]
     Indication: DRUG USE FOR UNKNOWN INDICATION
     Dosage: 15 MG;, 15 MG;
     Dates: start: 20080101
  3. ACTOS [Concomitant]
  4. SYNTHROID [Concomitant]
  5. ZYRTEC [Concomitant]

REACTIONS (8)
  - ANOREXIA [None]
  - ASTHENIA [None]
  - BLISTER [None]
  - BODY TEMPERATURE INCREASED [None]
  - CHILLS [None]
  - DIARRHOEA [None]
  - MALAISE [None]
  - OROPHARYNGEAL BLISTERING [None]
